FAERS Safety Report 22179180 (Version 1)
Quarter: 2023Q2

REPORT INFORMATION
  Report Type: Spontaneous
  Country: NL (occurrence: NL)
  Receive Date: 20230406
  Receipt Date: 20230406
  Transmission Date: 20230722
  Serious: Yes (Life-Threatening, Hospitalization)
  Sender: FDA-Public Use
  Company Number: None

PATIENT

DRUGS (1)
  1. OMEPRAZOLE [Suspect]
     Active Substance: OMEPRAZOLE
     Indication: Foetal exposure during pregnancy
     Dosage: MATERNAL DOSE: 20 MG, QD (1X PER DAG 1 TABLET) (GENEESMIDDEL VOORGESCHREVEN DOOR ARTS: JA)
     Route: 064

REACTIONS (1)
  - Foetal distress syndrome [Recovered/Resolved]
